FAERS Safety Report 7417746-3 (Version None)
Quarter: 2011Q2

REPORT INFORMATION
  Report Type: 
  Country: None (occurrence: None)
  Receive Date: 20110415
  Receipt Date: 20110406
  Transmission Date: 20111010
  Serious: Yes (Hospitalization)
  Sender: FDA-Public Use
  Company Number: US-EISAI INC-E3810-04543-SPO-US

PATIENT
  Age: 79 Year
  Sex: Female
  Weight: 60 kg

DRUGS (5)
  1. ACIPHEX [Suspect]
     Route: 048
     Dates: start: 20110201, end: 20110317
  2. LIPITOR [Concomitant]
     Dosage: UNKNOWN
  3. CELEBREX [Concomitant]
     Dosage: UNKNOWN
  4. TOPROL-XL [Concomitant]
     Dosage: UNKNOWN
  5. COZAAR [Concomitant]
     Dosage: UNKNOWN

REACTIONS (3)
  - BLINDNESS TRANSIENT [None]
  - SCINTILLATING SCOTOMA [None]
  - HEADACHE [None]
